FAERS Safety Report 8492789-X (Version None)
Quarter: 2012Q3

REPORT INFORMATION
  Report Type: 
  Country: None (occurrence: None)
  Receive Date: 20120706
  Receipt Date: 20120628
  Transmission Date: 20120928
  Serious: Yes (Hospitalization, Disabling)
  Sender: FDA-Public Use
  Company Number: ES-ALLERGAN-1208772US

PATIENT
  Age: 56 Year
  Sex: Male

DRUGS (2)
  1. OZURDEX [Suspect]
     Indication: VENOUS THROMBOSIS
     Dosage: 0.7 MG, SINGLE
     Route: 031
     Dates: start: 20120609, end: 20120609
  2. UNSPECIFIED DIABETIC TREATMENT [Concomitant]
     Indication: DIABETES MELLITUS
     Dosage: UNK

REACTIONS (2)
  - BLINDNESS [None]
  - ENDOPHTHALMITIS [None]
